FAERS Safety Report 7633435-4 (Version None)
Quarter: 2011Q3

REPORT INFORMATION
  Report Type: 
  Country: None (occurrence: None)
  Receive Date: 20110725
  Receipt Date: 20110720
  Transmission Date: 20111222
  Serious: Yes (Other)
  Sender: FDA-Public Use
  Company Number: BR-PFIZER INC-2011164679

PATIENT
  Age: 39 Year
  Sex: Female
  Weight: 71 kg

DRUGS (5)
  1. SERTRALINE [Concomitant]
     Indication: ANXIETY
     Dosage: 50 MG, 1X/DAY
     Dates: start: 20070101
  2. SERTRALINE [Concomitant]
     Indication: IRRITABILITY
  3. VARENICLINE TARTRATE [Suspect]
     Dosage: TWO TABLETS (UNKNOWN DOSE) PER DAY
     Route: 048
     Dates: start: 20110701
  4. VARENICLINE TARTRATE [Suspect]
     Indication: TOBACCO USER
     Dosage: UNK
     Route: 048
     Dates: start: 20110705, end: 20110701
  5. SERTRALINE [Concomitant]
     Indication: DEPRESSION

REACTIONS (6)
  - PRURITUS [None]
  - ERYTHEMA [None]
  - BURNING SENSATION [None]
  - SWELLING FACE [None]
  - TREMOR [None]
  - RASH [None]
